FAERS Safety Report 4666140-7 (Version None)
Quarter: 2005Q2

REPORT INFORMATION
  Report Type: 
  Country: None (occurrence: None)
  Receive Date: 20050519
  Receipt Date: 20050321
  Transmission Date: 20051028
  Serious: Yes (Death, Hospitalization)
  Sender: FDA-Public Use
  Company Number: GB-MERCK-0503USA04339

PATIENT
  Age: 75 Year
  Sex: Female

DRUGS (14)
  1. LANSOPRAZOLE [Suspect]
     Indication: DUODENAL ULCER
     Route: 065
     Dates: start: 20020301
  2. NITROGLYCERIN [Suspect]
     Indication: PAIN
     Route: 065
     Dates: start: 20020301
  3. DILTIAZEM HYDROCHLORIDE [Suspect]
     Indication: HYPERTENSION
     Route: 065
     Dates: start: 20020301
  4. MIDAZOLAM [Suspect]
     Indication: ANAESTHESIA
     Route: 042
     Dates: start: 20020301, end: 20020301
  5. FENTANYL [Suspect]
     Indication: ANAESTHESIA
     Route: 042
     Dates: start: 20020301, end: 20020301
  6. PROPOFOL [Suspect]
     Indication: ANAESTHESIA
     Route: 042
     Dates: start: 20020301, end: 20020301
  7. PANCURONIUM BROMIDE [Suspect]
     Indication: MUSCLE RELAXANT THERAPY
     Route: 065
     Dates: start: 20020301, end: 20020301
  8. ACETAMINOPHEN AND CODEINE [Suspect]
     Indication: RHEUMATOID ARTHRITIS
     Route: 065
     Dates: start: 20020301
  9. PRINIVIL [Suspect]
     Indication: HYPERTENSION
     Route: 048
     Dates: start: 20020301
  10. ARAVA [Suspect]
     Indication: RHEUMATOID ARTHRITIS
     Route: 048
     Dates: start: 20020301
  11. ASPIRIN [Suspect]
     Indication: PAIN
     Route: 065
     Dates: start: 20020301
  12. ATORVASTATIN CALCIUM [Suspect]
     Indication: HYPERCHOLESTEROLAEMIA
     Route: 065
     Dates: start: 19990101
  13. BUDESONIDE [Suspect]
     Indication: ASTHMA
     Route: 055
     Dates: start: 20020301
  14. QUININE SULFATE [Suspect]
     Indication: MUSCLE SPASMS
     Route: 065

REACTIONS (7)
  - CORONARY ARTERY DISEASE [None]
  - GASTROINTESTINAL HAEMORRHAGE [None]
  - HAEMATEMESIS [None]
  - HEPATIC FAILURE [None]
  - LABILE BLOOD PRESSURE [None]
  - RENAL FAILURE [None]
  - ULCER [None]
